FAERS Safety Report 23226673 (Version 1)
Quarter: 2023Q4

REPORT INFORMATION
  Report Type: Spontaneous
  Country: PY (occurrence: PY)
  Receive Date: 20231124
  Receipt Date: 20231124
  Transmission Date: 20240110
  Serious: Yes (Hospitalization, Other)
  Sender: FDA-Public Use
  Company Number: PY-SUN PHARMACEUTICAL INDUSTRIES LTD-2023R1-419750

PATIENT
  Age: 4 Month
  Sex: Male
  Weight: 6.8 kg

DRUGS (4)
  1. CEFTRIAXONE [Suspect]
     Active Substance: CEFTRIAXONE\CEFTRIAXONE SODIUM
     Indication: Pulmonary oedema
     Dosage: 340 MILLIGRAM
     Route: 065
  2. HYDROCORTISONE [Suspect]
     Active Substance: HYDROCORTISONE
     Indication: Pulmonary oedema
     Dosage: 13 MILLIGRAM
     Route: 065
  3. TRAMADOL [Suspect]
     Active Substance: TRAMADOL\TRAMADOL HYDROCHLORIDE
     Indication: Pulmonary oedema
     Dosage: 6 MILLIGRAM
     Route: 065
  4. CALCIUM GLUCONATE [Suspect]
     Active Substance: CALCIUM GLUCONATE
     Indication: Pulmonary oedema
     Dosage: 250 MILLIGRAM
     Route: 042

REACTIONS (1)
  - Condition aggravated [Unknown]
